FAERS Safety Report 7562377-8 (Version None)
Quarter: 2011Q2

REPORT INFORMATION
  Report Type: 
  Country: None (occurrence: None)
  Receive Date: 20110622
  Receipt Date: 20110609
  Transmission Date: 20111010
  Serious: Yes (Hospitalization, Other)
  Sender: FDA-Public Use
  Company Number: US-ELI_LILLY_AND_COMPANY-US201007002951

PATIENT
  Sex: Male

DRUGS (24)
  1. GABAPENTIN [Concomitant]
  2. CALCIUM 600 PLUS VITAMIN D [Concomitant]
  3. ANTIDIARRHEAL [Concomitant]
     Dosage: UNK, UNKNOWN
     Route: 065
  4. FORTEO [Suspect]
     Dosage: 20 UG, DAILY (1/D)
     Dates: start: 20101106
  5. FORTEO [Suspect]
     Dosage: 20 UG, DAILY (1/D)
  6. ALLOPURINOL [Concomitant]
  7. MAXZIDE [Concomitant]
  8. THYROID THERAPY [Concomitant]
  9. TRAMADOL HCL [Concomitant]
     Indication: PAIN
  10. CENTRUM SILVER [Concomitant]
  11. ASPIRIN [Concomitant]
     Dosage: 81 D/F, 1/2 OF 81
  12. TRIAMTEX [Concomitant]
     Dosage: UNK, UNKNOWN
     Route: 065
  13. FORTEO [Suspect]
     Indication: BONE DISORDER
     Dosage: 20 UG, DAILY (1/D)
     Route: 065
     Dates: start: 20100208
  14. COZAAR [Concomitant]
  15. FORTEO [Suspect]
     Dosage: 20 UG, DAILY (1/D)
     Route: 065
     Dates: start: 20110101
  16. VITAMIN D [Concomitant]
     Dosage: 1.25 MG, UNKNOWN
  17. METHOTREXATE [Concomitant]
     Dosage: UNK, UNKNOWN
     Route: 065
  18. PREDNISONE [Concomitant]
  19. FOLIC ACID [Concomitant]
  20. IMODIUM MULTI-SYMPTOM RELIEF [Concomitant]
     Indication: ANTIDIARRHOEAL SUPPORTIVE CARE
  21. FISH OIL [Concomitant]
     Dosage: UNK, UNKNOWN
     Route: 065
  22. REMICADE [Concomitant]
     Dosage: UNK, UNKNOWN
     Route: 065
  23. FORTEO [Suspect]
     Dosage: 20 UG, DAILY (1/D)
     Dates: end: 20100618
  24. POLYETHYLENE GLYCOL [Concomitant]
     Dosage: UNK, UNKNOWN
     Route: 065

REACTIONS (10)
  - TRANSFUSION [None]
  - DEPRESSION [None]
  - LACTOSE INTOLERANCE [None]
  - PAIN [None]
  - INTENTIONAL DRUG MISUSE [None]
  - NEPHROLITHIASIS [None]
  - BACK DISORDER [None]
  - FRACTURE NONUNION [None]
  - GAIT DISTURBANCE [None]
  - MEDICATION ERROR [None]
